FAERS Safety Report 6233584-1 (Version None)
Quarter: 2009Q2

REPORT INFORMATION
  Report Type: 
  Country: None (occurrence: None)
  Receive Date: 20090617
  Receipt Date: 20090610
  Transmission Date: 20091009
  Serious: Yes (Hospitalization)
  Sender: FDA-Public Use
  Company Number: US-GILEAD-2009-0021157

PATIENT
  Sex: Male

DRUGS (1)
  1. VISTIDE [Suspect]
     Indication: BK VIRUS INFECTION
     Route: 042

REACTIONS (2)
  - BLINDNESS TRANSIENT [None]
  - RENAL IMPAIRMENT [None]
